FAERS Safety Report 13580906 (Version 1)
Quarter: 2017Q2

REPORT INFORMATION
  Report Type: Spontaneous
  Country: FR (occurrence: FR)
  Receive Date: 20170525
  Receipt Date: 20170525
  Transmission Date: 20170830
  Serious: Yes (Hospitalization)
  Sender: FDA-Public Use
  Company Number: FR-BIOGEN-2017BI00405416

PATIENT
  Age: 45 Year
  Sex: Male

DRUGS (2)
  1. MIANSERINE [Concomitant]
     Active Substance: MIANSERIN HYDROCHLORIDE
     Indication: DEPRESSION
     Route: 065
     Dates: start: 201511, end: 201703
  2. TECFIDERA [Suspect]
     Active Substance: DIMETHYL FUMARATE
     Indication: MULTIPLE SCLEROSIS
     Route: 048
     Dates: start: 201511, end: 201703

REACTIONS (2)
  - Eosinophilic cellulitis [Unknown]
  - Depression [Unknown]

NARRATIVE: CASE EVENT DATE: 201612
